FAERS Safety Report 20664229 (Version 1)
Quarter: 2022Q2

REPORT INFORMATION
  Report Type: Report from Study
  Country: AR (occurrence: AR)
  Receive Date: 20220401
  Receipt Date: 20220401
  Transmission Date: 20220721
  Serious: Yes (Death)
  Sender: FDA-Public Use
  Company Number: AR-NOVARTISPH-NVSC2022AR072622

PATIENT
  Age: 34 Year
  Sex: Female

DRUGS (1)
  1. ALPELISIB [Suspect]
     Active Substance: ALPELISIB
     Indication: Metastatic neoplasm
     Dosage: UNK
     Route: 048

REACTIONS (3)
  - Lower gastrointestinal haemorrhage [Fatal]
  - Neoplasm progression [Fatal]
  - Vascular rupture [Fatal]
